FAERS Safety Report 5914370-6 (Version None)
Quarter: 2008Q4

REPORT INFORMATION
  Report Type: 
  Country: None (occurrence: None)
  Receive Date: 20081009
  Receipt Date: 20080930
  Transmission Date: 20090506
  Serious: Yes (Death)
  Sender: FDA-Public Use
  Company Number: JP-PFIZER INC-2008084355

PATIENT
  Sex: Male

DRUGS (15)
  1. IRINOTECAN HCL [Suspect]
     Indication: SMALL CELL LUNG CANCER STAGE UNSPECIFIED
     Dosage: DAILY DOSE:180MG-FREQ:INTERMITTENT
     Route: 042
     Dates: start: 20080219, end: 20080226
  2. IRINOTECAN HCL [Suspect]
     Dates: start: 20080318
  3. ASPIRIN [Concomitant]
     Indication: CEREBRAL INFARCTION
     Route: 048
     Dates: end: 20080331
  4. ALL OTHER THERAPEUTIC PRODUCTS [Concomitant]
     Indication: GASTRITIS PROPHYLAXIS
     Route: 048
     Dates: end: 20080331
  5. RABEPRAZOLE SODIUM [Concomitant]
     Indication: GASTRITIS PROPHYLAXIS
     Route: 048
     Dates: start: 20071113, end: 20080331
  6. ALLEGRA [Concomitant]
     Indication: ANTITUSSIVE THERAPY
     Route: 048
     Dates: start: 20080108, end: 20080331
  7. PREDNISOLONE [Concomitant]
     Indication: RADIATION PNEUMONITIS
     Route: 048
     Dates: start: 20071113, end: 20080331
  8. OXYCONTIN [Concomitant]
     Indication: CANCER PAIN
     Route: 048
     Dates: start: 20080218, end: 20080401
  9. OXINORM [Concomitant]
     Indication: CANCER PAIN
     Dosage: FREQ:AS NECESSARY
     Route: 048
     Dates: start: 20080218, end: 20080401
  10. LOXOPROFEN [Concomitant]
     Indication: CANCER PAIN
     Route: 048
     Dates: start: 20080122, end: 20080331
  11. MAGNESIUM OXIDE [Concomitant]
     Indication: CONSTIPATION
     Route: 048
     Dates: start: 20080207, end: 20080331
  12. SENNOSIDE A+B CALCIUM [Concomitant]
     Indication: CONSTIPATION
     Route: 048
     Dates: start: 20080221, end: 20080331
  13. SODIUM PICOSULFATE [Concomitant]
     Indication: CONSTIPATION
     Dosage: TEXT:10-20 DROPS
     Route: 048
     Dates: start: 20080212, end: 20080331
  14. CYANOCOBALAMIN [Concomitant]
     Indication: HYPOAESTHESIA
     Route: 048
     Dates: start: 20080108, end: 20080331
  15. NEUPOGEN [Concomitant]
     Dates: start: 20080303, end: 20080313

REACTIONS (1)
  - LUNG DISORDER [None]
